FAERS Safety Report 7634448-9 (Version None)
Quarter: 2011Q3

REPORT INFORMATION
  Report Type: 
  Country: None (occurrence: None)
  Receive Date: 20110725
  Receipt Date: 20110719
  Transmission Date: 20111222
  Serious: Yes (Death, Other)
  Sender: FDA-Public Use
  Company Number: PHHY2011JP31339

PATIENT
  Age: 86 Year
  Sex: Female
  Weight: 32 kg

DRUGS (3)
  1. GLEEVEC [Suspect]
     Indication: GASTROINTESTINAL STROMAL TUMOUR
     Dosage: 400 MG, DAILY
     Route: 048
     Dates: end: 20060729
  2. GLEEVEC [Suspect]
     Dosage: 100 MG, DAILY
     Route: 048
  3. GLEEVEC [Suspect]
     Dosage: 200 MG, DAILY
     Route: 048
     Dates: start: 20060922, end: 20110310

REACTIONS (7)
  - METASTASES TO LIVER [None]
  - GASTROINTESTINAL STROMAL TUMOUR [None]
  - ABDOMINAL DISCOMFORT [None]
  - MELAENA [None]
  - NEOPLASM MALIGNANT [None]
  - ABDOMINAL NEOPLASM [None]
  - HAEMOGLOBIN DECREASED [None]
